FAERS Safety Report 9026225 (Version 2)
Quarter: 2013Q2

REPORT INFORMATION
  Report Type: Spontaneous
  Country: US (occurrence: None)
  Receive Date: 20130104
  Receipt Date: 20130418
  Transmission Date: 20140414
  Serious: Yes (Other)
  Sender: FDA-Public Use
  Company Number: US-010465

PATIENT
  Age: 41 Year
  Sex: Female
  Weight: 64.86 kg

DRUGS (1)
  1. LYSTEDA [Suspect]
     Indication: PRODUCT USED FOR UNKNOWN INDICATION

REACTIONS (2)
  - Osteonecrosis [None]
  - Osteochondroma [None]
